FAERS Safety Report 18760669 (Version 2)
Quarter: 2021Q4

REPORT INFORMATION
  Report Type: Spontaneous
  Country: US (occurrence: US)
  Receive Date: 20210119
  Receipt Date: 20211006
  Transmission Date: 20220303
  Serious: Yes (Other)
  Sender: FDA-Public Use
  Company Number: US-PFIZER INC-2021011061

PATIENT
  Age: 83 Year
  Sex: Female
  Weight: 72.57 kg

DRUGS (2)
  1. LYRICA [Suspect]
     Active Substance: PREGABALIN
     Indication: Neuralgia
     Dosage: 150 MG, 2X/DAY (MORNING AND EVENING)
     Route: 048
  2. OXYCODONE [Concomitant]
     Active Substance: OXYCODONE
     Indication: Neuralgia
     Dosage: 10 MG, 2X/DAY

REACTIONS (3)
  - Dementia [Not Recovered/Not Resolved]
  - Mental disorder [Unknown]
  - Body height decreased [Unknown]

NARRATIVE: CASE EVENT DATE: 20200101
